FAERS Safety Report 4886381-3 (Version None)
Quarter: 2006Q1

REPORT INFORMATION
  Report Type: 
  Country: None (occurrence: None)
  Receive Date: 20060120
  Receipt Date: 20051208
  Transmission Date: 20060701
  Serious: Yes (Death, Hospitalization)
  Sender: FDA-Public Use
  Company Number: US-MERCK-0512USA01609

PATIENT
  Age: 65 Year
  Sex: Male
  Weight: 75 kg

DRUGS (9)
  1. VIOXX [Suspect]
     Indication: ARTHRITIS
     Route: 048
     Dates: start: 19990701, end: 20040101
  2. VIOXX [Suspect]
     Route: 048
     Dates: start: 19990701, end: 20040101
  3. INSULIN [Concomitant]
     Route: 065
  4. ZOLOFT [Concomitant]
     Route: 065
  5. LASIX [Concomitant]
     Route: 065
  6. ALTACE [Concomitant]
     Route: 065
  7. PREDNISONE [Concomitant]
     Route: 065
  8. COREG [Concomitant]
     Route: 065
  9. ADVAIR DISKUS 250/50 [Concomitant]
     Route: 065

REACTIONS (7)
  - CHEST PAIN [None]
  - DEPRESSION [None]
  - DIABETES MELLITUS [None]
  - HIP FRACTURE [None]
  - MYOCARDIAL INFARCTION [None]
  - OVERDOSE [None]
  - PELVIC FRACTURE [None]
